FAERS Safety Report 7497681-5 (Version None)
Quarter: 2011Q2

REPORT INFORMATION
  Report Type: 
  Country: None (occurrence: None)
  Receive Date: 20110523
  Receipt Date: 20110518
  Transmission Date: 20111010
  Serious: Yes (Other)
  Sender: FDA-Public Use
  Company Number: CH-ROXANE LABORATORIES, INC.-2011-RO-00684RO

PATIENT
  Age: 60 Year
  Sex: Female

DRUGS (3)
  1. LITHIUM CARBONATE [Suspect]
     Indication: PROPHYLAXIS
  2. RISPERIDONE [Suspect]
     Indication: PARANOIA
     Dosage: 6 MG
  3. LITHIUM CARBONATE [Suspect]
     Indication: SCHIZOAFFECTIVE DISORDER

REACTIONS (2)
  - NEUROTOXICITY [None]
  - ENCEPHALOPATHY [None]
